FAERS Safety Report 8737916 (Version 2)
Quarter: 2013Q4

REPORT INFORMATION
  Report Type: Spontaneous
  Country: FR (occurrence: FR)
  Receive Date: 20120823
  Receipt Date: 20131031
  Transmission Date: 20140711
  Serious: Yes (Death, Other)
  Sender: FDA-Public Use
  Company Number: FR-009507513-1208FRA005478

PATIENT
  Age: 67 Year
  Sex: Male

DRUGS (16)
  1. EMEND [Suspect]
     Dosage: 125 MG, ONCE
     Route: 048
     Dates: start: 20120221, end: 20120221
  2. EMEND [Suspect]
     Dosage: 80 MG, ONCE
     Route: 048
     Dates: start: 20120222, end: 20120222
  3. ARACYTINE [Suspect]
     Dosage: 200 MG, ONCE
     Route: 042
     Dates: start: 20120222, end: 20120222
  4. ETOPOSIDE [Suspect]
     Dosage: 200 MG, ONCE
     Route: 042
     Dates: start: 20120222, end: 20120222
  5. ONDANSETRON [Suspect]
     Dosage: 8 MG, ONCE
     Route: 042
     Dates: start: 20120221, end: 20120221
  6. ONDANSETRON [Suspect]
     Dosage: 8 MG, ONCE
     Route: 042
     Dates: start: 20120222, end: 20120222
  7. METHYLPREDNISOLONE [Suspect]
     Dosage: 60 MG, ONCE
     Route: 042
     Dates: start: 20120221, end: 20120221
  8. METHYLPREDNISOLONE [Suspect]
     Dosage: 160 MG, ONCE
     Route: 042
     Dates: start: 20120222, end: 20120222
  9. BICNU [Concomitant]
     Dosage: 600 MG, ONCE
     Route: 042
     Dates: start: 20120221, end: 20120221
  10. VALIUM [Concomitant]
     Route: 048
  11. DIAMICRON [Concomitant]
     Dosage: 30 MG, UNK
  12. INEXIUM [Concomitant]
     Dosage: 40 MG, UNK
     Route: 048
  13. PRAVASTATIN SODIUM [Concomitant]
     Dosage: 10 MG, UNK
     Route: 048
  14. AMLODIPINE [Concomitant]
     Dosage: 5 MG, UNK
     Route: 048
  15. DAFALGAN [Concomitant]
     Dosage: 1 G, PRN
  16. TOPALGIC (TRAMADOL HYDROCHLORIDE) [Concomitant]
     Dosage: 50 MG, UNK
     Route: 048

REACTIONS (1)
  - Cardio-respiratory arrest [Fatal]
